FAERS Safety Report 20690759 (Version 1)
Quarter: 2022Q2

REPORT INFORMATION
  Report Type: Spontaneous
  Country: US (occurrence: US)
  Receive Date: 20220408
  Receipt Date: 20220408
  Transmission Date: 20220721
  Serious: Yes (Life-Threatening, Hospitalization, Other)
  Sender: FDA-Public Use
  Company Number: US-SA-2022SA080624

PATIENT
  Age: 16 Year
  Sex: Male

DRUGS (4)
  1. LIDOCAINE [Suspect]
     Active Substance: LIDOCAINE
     Indication: Echocardiogram
     Dosage: VISCOUS
     Route: 061
  2. BENZOCAINE [Suspect]
     Active Substance: BENZOCAINE
     Indication: Echocardiogram
     Dosage: SEVERAL HURRICANE SPRAYS
     Route: 061
  3. LIDOCAINE AND PRILOCAINE [Suspect]
     Active Substance: LIDOCAINE\PRILOCAINE
     Indication: Local anaesthesia
     Dosage: EUTETIC MIXTURE OF LOCAL ANAESTHETICS (EMLA)
     Route: 061
  4. LIDOCAINE AND PRILOCAINE [Suspect]
     Active Substance: LIDOCAINE\PRILOCAINE
     Indication: Central venous catheterisation

REACTIONS (7)
  - Methaemoglobinaemia [Recovered/Resolved]
  - Respiratory distress [Recovered/Resolved]
  - Hypoxia [Recovered/Resolved]
  - Dizziness [Recovered/Resolved]
  - Fatigue [Recovered/Resolved]
  - Dyspnoea [Recovered/Resolved]
  - Syncope [Recovered/Resolved]
